FAERS Safety Report 9761300 (Version 2)
Quarter: 2013Q4

REPORT INFORMATION
  Report Type: Spontaneous
  Country: US (occurrence: US)
  Receive Date: 20131216
  Receipt Date: 20131216
  Transmission Date: 20140711
  Serious: Yes (Other)
  Sender: FDA-Public Use
  Company Number: US-BRISTOL-MYERS SQUIBB COMPANY-19215987

PATIENT
  Age: 85 Year
  Sex: Female

DRUGS (1)
  1. COUMADIN [Suspect]
     Indication: ATRIAL FIBRILLATION
     Dosage: ON WARFARIN FOR 7 OR 8 YEARS.?1 DF= 2.5 MG FROM MON TO SAT AND 5MG ON SUNDAY
     Route: 048

REACTIONS (3)
  - Haemorrhage [Unknown]
  - Macular degeneration [Unknown]
  - International normalised ratio fluctuation [Unknown]
